FAERS Safety Report 24215641 (Version 3)
Quarter: 2024Q4

REPORT INFORMATION
  Report Type: Spontaneous
  Country: BH (occurrence: BH)
  Receive Date: 20240816
  Receipt Date: 20241021
  Transmission Date: 20250115
  Serious: Yes (Death, Hospitalization, Other)
  Sender: AMGEN
  Company Number: BH-AMGEN-BHRSP2024159615

PATIENT
  Age: 38 Year
  Sex: Female

DRUGS (3)
  1. FILGRASTIM [Suspect]
     Active Substance: FILGRASTIM
     Indication: Squamous cell carcinoma of the cervix
     Dosage: UNK
     Route: 065
  2. ELTROMBOPAG [Suspect]
     Active Substance: ELTROMBOPAG
     Indication: Product used for unknown indication
     Dosage: 150 MILLIGRAM, QD
     Route: 065
  3. CISPLATIN [Concomitant]
     Active Substance: CISPLATIN
     Dosage: 40 MILLIGRAM/SQ. METER, QWK
     Route: 065

REACTIONS (4)
  - Squamous cell carcinoma of the cervix [Fatal]
  - Abdominal infection [Unknown]
  - Bone marrow failure [Unknown]
  - Alopecia [Unknown]
